FAERS Safety Report 15046151 (Version 1)
Quarter: 2018Q2

REPORT INFORMATION
  Report Type: Report from Study
  Country: None (occurrence: US)
  Receive Date: 20180621
  Receipt Date: 20180621
  Transmission Date: 20180711
  Serious: Yes (Hospitalization, Other)
  Sender: FDA-Public Use
  Company Number: US-ABBVIE-18K-163-2389628-00

PATIENT
  Sex: Male

DRUGS (1)
  1. VENCLEXTA [Suspect]
     Active Substance: VENETOCLAX
     Indication: ACUTE MYELOID LEUKAEMIA
     Route: 048
     Dates: start: 201805

REACTIONS (32)
  - Blood phosphorus decreased [Unknown]
  - Pericardial effusion [Unknown]
  - Off label use [Unknown]
  - Protein urine present [Unknown]
  - Blood potassium decreased [Unknown]
  - Blood uric acid decreased [Unknown]
  - Aspartate aminotransferase decreased [Unknown]
  - Blood magnesium decreased [Unknown]
  - Anaemia macrocytic [Unknown]
  - Escherichia bacteraemia [Unknown]
  - Hepatic function abnormal [Unknown]
  - Sepsis [Unknown]
  - Blood glucose increased [Unknown]
  - Hepatomegaly [Unknown]
  - Cellulitis [Unknown]
  - International normalised ratio increased [Unknown]
  - Acute myeloid leukaemia recurrent [Unknown]
  - Blood urine present [Unknown]
  - Urine ketone body [Unknown]
  - Blood calcium decreased [Unknown]
  - Pancytopenia [Unknown]
  - Hospitalisation [Unknown]
  - Blood lactic acid decreased [Unknown]
  - Protein total decreased [Unknown]
  - Blood albumin decreased [Unknown]
  - Confusional state [Unknown]
  - Pain in extremity [Unknown]
  - Heart rate increased [Unknown]
  - Blood sodium decreased [Unknown]
  - Fluid overload [Unknown]
  - Hyperbilirubinaemia [Unknown]
  - Graft versus host disease [Unknown]

NARRATIVE: CASE EVENT DATE: 2018
